FAERS Safety Report 6517648-0 (Version None)
Quarter: 2009Q4

REPORT INFORMATION
  Report Type: 
  Country: None (occurrence: None)
  Receive Date: 20091224
  Receipt Date: 20091210
  Transmission Date: 20100525
  Serious: Yes (Other)
  Sender: FDA-Public Use
  Company Number: JP-PFIZER INC-2009313749

PATIENT
  Sex: Male

DRUGS (8)
  1. ATARAX [Suspect]
     Route: 048
  2. PAXIL [Suspect]
     Indication: DEPRESSION
     Dosage: 20 MG, 1X/DAY
     Route: 048
     Dates: start: 20091110
  3. LENDORMIN [Suspect]
     Route: 048
  4. ROHYPNOL [Suspect]
  5. DALMANE [Suspect]
     Route: 048
  6. MUCOSTA [Suspect]
     Route: 048
  7. AMARYL [Suspect]
     Route: 048
  8. URSODEOXYCHOLIC ACID [Suspect]
     Route: 048

REACTIONS (2)
  - AGGRESSION [None]
  - PHYSICAL ASSAULT [None]
